FAERS Safety Report 6884577-2 (Version None)
Quarter: 2010Q3

REPORT INFORMATION
  Report Type: 
  Country: None (occurrence: None)
  Receive Date: 20100727
  Receipt Date: 20100712
  Transmission Date: 20110219
  Serious: Yes (Life-Threatening, Hospitalization)
  Sender: FDA-Public Use
  Company Number: 235858

PATIENT
  Age: 55 Year
  Sex: Male

DRUGS (9)
  1. IRINOTECAN HCL [Suspect]
     Indication: RECTAL CANCER
     Dosage: 315 MG, 2 WEEK, INTRAVENOUS
     Route: 042
     Dates: start: 20090112, end: 20090224
  2. FLUOROURACIL [Suspect]
     Indication: RECTAL CANCER
     Dosage: 1700 MG, 2 WEEK, INTRAVENOUS
     Route: 042
     Dates: start: 20090112, end: 20090224
  3. AVASTIN [Suspect]
     Indication: RECTAL CANCER
     Dosage: 300 MG, 2 WEEK, INTRAVENOUS
     Route: 042
     Dates: start: 20090112, end: 20090223
  4. (PANTOLOC /01263202/) [Concomitant]
  5. PREDNISOLONE [Concomitant]
  6. (ONDANSETERON) [Concomitant]
  7. (EMPERAL) [Concomitant]
  8. ATROPINE [Concomitant]
  9. AMLODIPINE [Concomitant]

REACTIONS (9)
  - AORTIC ANEURYSM [None]
  - CARDIO-RESPIRATORY ARREST [None]
  - CHEST PAIN [None]
  - DIARRHOEA [None]
  - DYSPEPSIA [None]
  - MUCOUS MEMBRANE DISORDER [None]
  - NAUSEA [None]
  - PROTEINURIA [None]
  - UNRESPONSIVE TO STIMULI [None]
